FAERS Safety Report 4721599-1 (Version None)
Quarter: 2005Q3

REPORT INFORMATION
  Report Type: 
  Country: None (occurrence: None)
  Receive Date: 20050721
  Receipt Date: 20041222
  Transmission Date: 20060218
  Serious: Yes (Hospitalization, Other)
  Sender: FDA-Public Use
  Company Number: US-BRISTOL-MYERS SQUIBB COMPANY-12803656

PATIENT
  Age: 66 Year
  Sex: Male
  Weight: 76 kg

DRUGS (6)
  1. COUMADIN [Suspect]
     Indication: PULMONARY THROMBOSIS
     Dosage: 11/6-11/12=5MG;11/13=2MG,STOP,11/30=4MG,12/3-12/4=2MG,STOP,12/7-12/15=2MG,12/16-12/20=3MG,12/21=4MG
     Route: 048
     Dates: start: 20041106
  2. MULTI-VITAMIN [Suspect]
     Dosage: STOPPED FOR A FEW DAYS
  3. VICODIN [Concomitant]
  4. DIAZEPAM [Concomitant]
  5. GRAPESEED EXTRACT [Concomitant]
  6. VITAMIN E [Concomitant]

REACTIONS (3)
  - INTERNATIONAL NORMALISED RATIO FLUCTUATION [None]
  - PROTHROMBIN TIME ABNORMAL [None]
  - VITAMIN K DEFICIENCY [None]
